FAERS Safety Report 6556383-X (Version None)
Quarter: 2010Q1

REPORT INFORMATION
  Report Type: 
  Country: None (occurrence: None)
  Receive Date: 20100128
  Receipt Date: 20100119
  Transmission Date: 20100710
  Serious: Yes (Disabling)
  Sender: FDA-Public Use
  Company Number: GXKR2010AU00939

PATIENT

DRUGS (16)
  1. CODEINE PHOSPHATE AND ACETAMINOPHEN [Suspect]
     Dosage: TOTAL DAILY CODEINE DOSE MORE THAN 8 TABLETS
     Route: 065
  2. CODEINE PHOSPHATE (NGX) [Suspect]
     Route: 065
  3. OXYCODONE HYDROCHLORIDE [Suspect]
     Route: 065
  4. DEXTROPROPOXYPHENE (NGX) [Suspect]
     Route: 065
  5. CALCITRIOL [Concomitant]
  6. FUROSEMIDE [Concomitant]
  7. METOPROLOL [Concomitant]
  8. DOTHIEPIN HYDROCHLORIDE [Concomitant]
  9. RAMIPRIL [Concomitant]
  10. CELECOXIB [Concomitant]
  11. ALLOPURINOL [Concomitant]
  12. ACETAZOLAMIDE [Concomitant]
  13. SODIUM BICARBONATE [Concomitant]
  14. ACETYLSALICYLIC ACID [Concomitant]
  15. PREDNISOLONE [Concomitant]
  16. FLUNITRAZEPAM [Concomitant]

REACTIONS (4)
  - COCHLEA IMPLANT [None]
  - DEAFNESS NEUROSENSORY [None]
  - MACROCYTOSIS [None]
  - TINNITUS [None]
